FAERS Safety Report 7444177-2 (Version None)
Quarter: 2011Q2

REPORT INFORMATION
  Report Type: 
  Country: None (occurrence: None)
  Receive Date: 20110429
  Receipt Date: 20100324
  Transmission Date: 20111010
  Serious: No
  Sender: FDA-Public Use
  Company Number: US-BAYER-201018246NA

PATIENT
  Sex: Female

DRUGS (3)
  1. IBUPROFEN [Concomitant]
     Indication: MALAISE
  2. YAZ [Suspect]
  3. THERAFLU [DEXTROMET HBR,PARACET,PSEUDOEPH HCL] [Concomitant]
     Indication: MALAISE

REACTIONS (1)
  - MENSTRUATION DELAYED [None]
